FAERS Safety Report 9137703 (Version 1)
Quarter: 2013Q1

REPORT INFORMATION
  Report Type: Spontaneous
  Country: US (occurrence: US)
  Receive Date: 20130304
  Receipt Date: 20130304
  Transmission Date: 20140127
  Serious: Yes (Other)
  Sender: FDA-Public Use
  Company Number: PHHY2013US019867

PATIENT
  Age: 48 Year
  Sex: Female

DRUGS (10)
  1. HYDROXYCHLOROQUINE [Suspect]
     Dosage: 250 MG, PER DAY
  2. PREDNISONE [Suspect]
     Dosage: UNSPECIFIED DOSE
  3. PREDNISONE [Suspect]
     Dosage: 40 MG, PER DAY
     Dates: end: 201111
  4. PREDNISONE [Suspect]
     Dosage: 20 MG, PER DAY
  5. METHOTREXATE [Suspect]
     Dosage: 15 MG, PER WEEK
     Route: 026
  6. METHOTREXATE [Suspect]
     Dosage: 22.5 MG/KG, QW
  7. METHYLPREDNISOLONE [Suspect]
     Dosage: 7.5 MG, QW
  8. THALIDOMIDE [Suspect]
     Dosage: 100 MG, PER DAY
  9. CORTICOSTEROID NOS [Suspect]
     Route: 061
  10. MINOCYCLINE [Concomitant]
     Dosage: 100 MG, BID

REACTIONS (9)
  - Leukopenia [Unknown]
  - Liver function test abnormal [Unknown]
  - Cutaneous sarcoidosis [Recovered/Resolved]
  - Skin lesion [Recovered/Resolved]
  - Diarrhoea [Unknown]
  - Abdominal pain [Unknown]
  - Neuropathy peripheral [Unknown]
  - Abdominal discomfort [Unknown]
  - Fatigue [Unknown]
